FAERS Safety Report 10695726 (Version 4)
Quarter: 2015Q1

REPORT INFORMATION
  Report Type: Spontaneous
  Country: US (occurrence: US)
  Receive Date: 20150107
  Receipt Date: 20150316
  Transmission Date: 20150721
  Serious: No
  Sender: FDA-Public Use
  Company Number: US-PFIZER INC-2014363156

PATIENT
  Age: 64 Year
  Sex: Female
  Weight: 53 kg

DRUGS (7)
  1. ESTRING [Suspect]
     Active Substance: ESTRADIOL
     Indication: POLLAKIURIA
     Dosage: 2 MG, EVERY 3 MONTHS
     Dates: start: 20141204
  2. LISINOPRIL. [Concomitant]
     Active Substance: LISINOPRIL
     Indication: HYPERTENSION
     Dosage: 3 MG, DAILY
  3. HYDROCHLOROTHIAZIDE. [Concomitant]
     Active Substance: HYDROCHLOROTHIAZIDE
     Indication: HYPERTENSION
     Dosage: 8 MG, DAILY
  4. PROAIR HFA [Concomitant]
     Active Substance: ALBUTEROL SULFATE
     Indication: ORAL HERPES
     Dosage: 90 ?G, AS NEEDED
     Route: 055
  5. PROAIR HFA [Concomitant]
     Active Substance: ALBUTEROL SULFATE
     Indication: FUNGAL INFECTION
  6. ESTRING [Suspect]
     Active Substance: ESTRADIOL
     Indication: HOT FLUSH
  7. ESTRING [Suspect]
     Active Substance: ESTRADIOL
     Indication: BLOOD OESTROGEN DECREASED

REACTIONS (3)
  - Drug ineffective [Recovered/Resolved]
  - Irritability [Recovered/Resolved]
  - Product quality issue [Recovered/Resolved]

NARRATIVE: CASE EVENT DATE: 201412
